FAERS Safety Report 15817760 (Version 1)
Quarter: 2019Q1

REPORT INFORMATION
  Report Type: Spontaneous
  Country: NL (occurrence: NL)
  Receive Date: 20190113
  Receipt Date: 20190113
  Transmission Date: 20190417
  Serious: Yes (Hospitalization)
  Sender: FDA-Public Use
  Company Number: NL-TEVA-2019-NL-998265

PATIENT
  Age: 17 Year
  Sex: Female
  Weight: 65 kg

DRUGS (6)
  1. FLUANXOL [Concomitant]
     Active Substance: FLUPENTIXOL
  2. OXAZEPAM. [Concomitant]
     Active Substance: OXAZEPAM
  3. HALDOL [Concomitant]
     Active Substance: HALOPERIDOL
  4. CLOMIPRAMINE TABLET MET GEREGULEERDE AFGIFTE, 75 MG (MILLIGRAM) [Suspect]
     Active Substance: CLOMIPRAMINE
     Indication: DEPRESSED MOOD
     Dates: start: 201701
  5. PROMETHAZINE [Concomitant]
     Active Substance: PROMETHAZINE\PROMETHAZINE HYDROCHLORIDE
  6. OLANZAPINE. [Concomitant]
     Active Substance: OLANZAPINE

REACTIONS (4)
  - Dissociation [Recovered/Resolved]
  - Aggression [Recovered/Resolved]
  - Hallucination [Recovered/Resolved]
  - Delusion [Recovered/Resolved]

NARRATIVE: CASE EVENT DATE: 201701
